FAERS Safety Report 4344466-4 (Version None)
Quarter: 2004Q2

REPORT INFORMATION
  Report Type: 
  Country: None (occurrence: None)
  Receive Date: 20040422
  Receipt Date: 20040413
  Transmission Date: 20050107
  Serious: Yes (Hospitalization)
  Sender: FDA-Public Use
  Company Number: PHHO2004BE05365

PATIENT
  Age: 60 Year
  Sex: Female

DRUGS (2)
  1. SIMULECT [Suspect]
     Indication: LIVER TRANSPLANT
     Dosage: NOT REPORTED
     Route: 042
  2. NEORAL [Suspect]
     Indication: LIVER TRANSPLANT
     Dosage: 150 MG, BID
     Route: 048
     Dates: start: 20040226

REACTIONS (2)
  - CHOLESTASIS [None]
  - LIVER TRANSPLANT REJECTION [None]
